FAERS Safety Report 23774155 (Version 1)
Quarter: 2024Q2

REPORT INFORMATION
  Report Type: Spontaneous
  Country: US (occurrence: US)
  Receive Date: 20240423
  Receipt Date: 20240423
  Transmission Date: 20240715
  Serious: No
  Sender: FDA-Public Use
  Company Number: US-ANIPHARMA-2023-US-011114

PATIENT
  Age: 54 Year
  Sex: Female
  Weight: 99.79 kg

DRUGS (12)
  1. PROPRANOLOL HYDROCHLORIDE [Suspect]
     Active Substance: PROPRANOLOL HYDROCHLORIDE
     Indication: Hypertension
     Dosage: 60 MG ONCE DAILY IN THE EVENING, THEN  STOPPED IN 2017, AND STARTED AGAIN ON 28-APR-2023
     Route: 048
     Dates: start: 2017
  2. MIRALAX [Concomitant]
     Active Substance: POLYETHYLENE GLYCOL 3350
  3. UNSPECIFIED INGREDIENT [Concomitant]
     Active Substance: UNSPECIFIED INGREDIENT
  4. NYSTATIN [Concomitant]
     Active Substance: NYSTATIN
  5. INDERAL XL [Suspect]
     Active Substance: PROPRANOLOL HYDROCHLORIDE
     Indication: Hypertension
     Dosage: 80MG ONCE A DAY
     Route: 048
     Dates: start: 2017, end: 20230427
  6. OMEPRAZOLE [Concomitant]
     Active Substance: OMEPRAZOLE
  7. LORATADINE [Concomitant]
     Active Substance: LORATADINE
  8. VITAMIN B12 [Concomitant]
     Active Substance: CYANOCOBALAMIN
  9. VITAMINS [Concomitant]
     Active Substance: VITAMINS
  10. Pre/Probiotic [Concomitant]
  11. CALCIUM [Concomitant]
     Active Substance: CALCIUM
  12. BENEFIBER [Concomitant]
     Active Substance: STARCH, WHEAT

REACTIONS (5)
  - Dyspnoea [Recovering/Resolving]
  - Anxiety [Recovering/Resolving]
  - Palpitations [Recovering/Resolving]
  - Dizziness [Recovering/Resolving]
  - Blood pressure decreased [Recovered/Resolved]

NARRATIVE: CASE EVENT DATE: 20170101
